FAERS Safety Report 7915925-X (Version None)
Quarter: 2011Q4

REPORT INFORMATION
  Report Type: 
  Country: None (occurrence: None)
  Receive Date: 20111115
  Receipt Date: 20111103
  Transmission Date: 20120403
  Serious: Yes (Hospitalization, Other)
  Sender: FDA-Public Use
  Company Number: US-ELI_LILLY_AND_COMPANY-US201107000763

PATIENT
  Sex: Female

DRUGS (7)
  1. FORTEO [Suspect]
     Indication: OSTEOPOROSIS
     Dosage: 20 UG, QD
     Route: 065
     Dates: start: 20110620
  2. VITAMIN D [Concomitant]
  3. FORTEO [Suspect]
     Dosage: 20 UG, QD
     Dates: end: 20110920
  4. LEVOTHYROXINE SODIUM [Concomitant]
  5. FORTEO [Suspect]
     Dosage: 20 UG, QD
     Route: 065
  6. FLAXSEED OIL [Concomitant]
  7. CALCIUM [Concomitant]

REACTIONS (5)
  - FEMUR FRACTURE [None]
  - FALL [None]
  - WEIGHT BEARING DIFFICULTY [None]
  - MUSCLE SPASMS [None]
  - ASTHENIA [None]
